FAERS Safety Report 12675810 (Version 1)
Quarter: 2016Q3

REPORT INFORMATION
  Report Type: Spontaneous
  Country: US (occurrence: US)
  Receive Date: 20160823
  Receipt Date: 20160823
  Transmission Date: 20161109
  Serious: No
  Sender: FDA-Public Use
  Company Number: US-TEVA-646887USA

PATIENT
  Sex: Female

DRUGS (1)
  1. BENZATROPINE [Suspect]
     Active Substance: BENZTROPINE
     Route: 065

REACTIONS (2)
  - Pruritus [Unknown]
  - Drug hypersensitivity [Unknown]
